FAERS Safety Report 17238426 (Version 1)
Quarter: 2020Q1

REPORT INFORMATION
  Report Type: Spontaneous
  Country: US (occurrence: US)
  Receive Date: 20200104
  Receipt Date: 20200104
  Transmission Date: 20200409
  Serious: No
  Sender: FDA-Public Use
  Company Number: None

PATIENT
  Age: 49 Year
  Sex: Female
  Weight: 65.25 kg

DRUGS (13)
  1. ZINC. [Concomitant]
     Active Substance: ZINC
  2. VITAMINS B12 [Concomitant]
  3. NASACORT [Concomitant]
     Active Substance: TRIAMCINOLONE ACETONIDE
  4. IRON [Concomitant]
     Active Substance: IRON
  5. LYCOPENE [Concomitant]
     Active Substance: LYCOPENE
  6. CARBOXYMETHYLCELLULOSE EYE DROPS [Concomitant]
  7. DIAZAPAM 5MG [Suspect]
     Active Substance: DIAZEPAM
     Indication: VULVOVAGINAL PAIN
     Dosage: ?          QUANTITY:1 TABLET(S);OTHER FREQUENCY:NIGHT 1-3 X MONTH;?
     Route: 067
     Dates: start: 20190206
  8. CHELATED MAGNESIUM [Concomitant]
  9. ORTHOSILICIC ACID [Concomitant]
  10. MUCINEX [Concomitant]
     Active Substance: GUAIFENESIN
  11. VITAMIN C [Concomitant]
     Active Substance: ASCORBIC ACID
  12. VITAMIN D [Concomitant]
     Active Substance: VITAMIN D NOS
  13. BIOTIN [Concomitant]
     Active Substance: BIOTIN

REACTIONS (6)
  - Vision blurred [None]
  - Gastrooesophageal reflux disease [None]
  - Insomnia [None]
  - Diarrhoea [None]
  - Polyuria [None]
  - Irritability [None]

NARRATIVE: CASE EVENT DATE: 20200103
